FAERS Safety Report 5463929-1 (Version None)
Quarter: 2007Q3

REPORT INFORMATION
  Report Type: 
  Country: None (occurrence: None)
  Receive Date: 20070921
  Receipt Date: 20070613
  Transmission Date: 20080115
  Serious: No
  Sender: FDA-Public Use
  Company Number: A0655897A

PATIENT
  Age: 60 Year
  Sex: Female

DRUGS (10)
  1. AVANDARYL [Suspect]
     Route: 048
     Dates: start: 20050101
  2. AMARYL [Concomitant]
  3. INDERAL [Concomitant]
  4. DIOVAN [Concomitant]
  5. HYDROCHLOROTHIAZIDE [Concomitant]
  6. MACROBID [Concomitant]
  7. LEXAPRO [Concomitant]
  8. CLONAZEPAM [Concomitant]
  9. AMBIEN [Concomitant]
  10. NEXIUM [Concomitant]

REACTIONS (2)
  - CHEST PAIN [None]
  - DYSPNOEA EXERTIONAL [None]
